FAERS Safety Report 6661902-9 (Version None)
Quarter: 2010Q1

REPORT INFORMATION
  Report Type: 
  Country: None (occurrence: None)
  Receive Date: 20100331
  Receipt Date: 20090923
  Transmission Date: 20100710
  Serious: No
  Sender: FDA-Public Use
  Company Number: US-BRISTOL-MYERS SQUIBB COMPANY-14790299

PATIENT
  Age: 52 Year
  Sex: Male
  Weight: 73 kg

DRUGS (7)
  1. ERBITUX [Suspect]
     Indication: HEAD AND NECK CANCER
     Dosage: RECEIVED 2 TREATMENTS
     Route: 042
     Dates: start: 20090911
  2. ERBITUX [Suspect]
     Indication: METASTASES TO SPINE
     Dosage: RECEIVED 2 TREATMENTS
     Route: 042
     Dates: start: 20090911
  3. TAXOL [Concomitant]
  4. RADIATION THERAPY [Concomitant]
  5. ZOFRAN [Concomitant]
     Indication: PREMEDICATION
     Route: 048
  6. BENADRYL [Concomitant]
     Indication: PREMEDICATION
     Route: 042
  7. STEROIDS [Concomitant]
     Indication: PREMEDICATION

REACTIONS (2)
  - ACNE [None]
  - RASH [None]
